FAERS Safety Report 6647527-X (Version None)
Quarter: 2010Q1

REPORT INFORMATION
  Report Type: 
  Country: None (occurrence: None)
  Receive Date: 20100323
  Receipt Date: 20100323
  Transmission Date: 20100710
  Serious: Yes (Other)
  Sender: FDA-Public Use
  Company Number: None

PATIENT
  Age: 31 Year
  Sex: Female
  Weight: 59.1 kg

DRUGS (2)
  1. NUVARING [Suspect]
     Dosage: 1 RING 3 WEEKS VAGINAL
     Route: 067
     Dates: start: 20080301
  2. NUVARING [Suspect]
     Dosage: 1 RING 3 WEEKS VAGINAL
     Route: 067
     Dates: start: 20091101

REACTIONS (12)
  - ALOPECIA [None]
  - BLISTER [None]
  - BREAST TENDERNESS [None]
  - DRY EYE [None]
  - DYSPNOEA [None]
  - JOINT SWELLING [None]
  - LIP DISCOLOURATION [None]
  - OEDEMA PERIPHERAL [None]
  - RASH [None]
  - SCLERAL DISORDER [None]
  - SKIN DISCOLOURATION [None]
  - WEIGHT INCREASED [None]
